FAERS Safety Report 4813709-2 (Version None)
Quarter: 2005Q4

REPORT INFORMATION
  Report Type: 
  Country: None (occurrence: None)
  Receive Date: 20051028
  Receipt Date: 20050309
  Transmission Date: 20060501
  Serious: No
  Sender: FDA-Public Use
  Company Number: US-GLAXOSMITHKLINE-A0549052A

PATIENT
  Age: 83 Year
  Sex: Female

DRUGS (10)
  1. ADVAIR DISKUS 100/50 [Suspect]
     Dosage: 1PUFF PER DAY
     Route: 055
     Dates: start: 20050302
  2. LIPITOR [Concomitant]
  3. ALLEGRA [Concomitant]
  4. PLAVIX [Concomitant]
  5. PREVACID [Concomitant]
  6. ATENOLOL [Concomitant]
  7. ASCORBIC ACID [Concomitant]
  8. CALCIUM SUPPLEMENT [Concomitant]
  9. PREDNISONE [Concomitant]
  10. DIURETIC [Concomitant]

REACTIONS (1)
  - DYSPNOEA [None]
